FAERS Safety Report 23444008 (Version 1)
Quarter: 2024Q1

REPORT INFORMATION
  Report Type: Spontaneous
  Country: US (occurrence: US)
  Receive Date: 20240125
  Receipt Date: 20240125
  Transmission Date: 20240409
  Serious: Yes (Other)
  Sender: FDA-Public Use
  Company Number: US-BRISTOL-MYERS SQUIBB COMPANY-2024-011779

PATIENT
  Age: 66 Year
  Sex: Female
  Weight: 55.1 kg

DRUGS (3)
  1. ELIQUIS [Suspect]
     Active Substance: APIXABAN
     Indication: Product used for unknown indication
     Route: 048
     Dates: start: 20210730
  2. IBRANCE [Suspect]
     Active Substance: PALBOCICLIB
     Indication: Prophylactic chemotherapy
     Dosage: TAKE 1 TABLET (125 MG TOTAL) BY MOUTH IN THE MORNING FOR 28 DAYS SWALLOW WHOLE. TAKE FOR 21 DAYS FOL
     Route: 048
     Dates: start: 20231108, end: 20231207
  3. IBRANCE [Suspect]
     Active Substance: PALBOCICLIB
     Dosage: SIG: TAKE 1 TABLET DAYS 1-21 EVERY 28 DAYS.?QTY: 21 TABLET?REFILL: 5.
     Route: 048
     Dates: start: 20240117

REACTIONS (1)
  - Breast cancer female [Unknown]
